FAERS Safety Report 18737348 (Version 1)
Quarter: 2021Q1

REPORT INFORMATION
  Report Type: Spontaneous
  Country: SE (occurrence: SE)
  Receive Date: 20210113
  Receipt Date: 20210113
  Transmission Date: 20210419
  Serious: Yes (Hospitalization)
  Sender: FDA-Public Use
  Company Number: SE-ANIPHARMA-2021-SE-000001

PATIENT
  Age: 71 Year
  Sex: Female

DRUGS (22)
  1. CANDESARTAN CILEXETIL. [Suspect]
     Active Substance: CANDESARTAN CILEXETIL
     Indication: CARDIAC FAILURE
     Dosage: 4 MG QD
     Route: 048
     Dates: start: 20201026, end: 20201102
  2. CILAXORAL [Concomitant]
     Active Substance: SODIUM PICOSULFATE
     Dosage: UNKNOWN DOSE AND FREQUENCY
     Route: 065
  3. FORLAX [Concomitant]
     Active Substance: POLYETHYLENE GLYCOL 4000
     Dosage: UNKNOWN DOSE AND FREQUENCY
     Route: 065
     Dates: start: 20200915
  4. HYPRENAN [Concomitant]
     Dosage: UNKNOWN DOSE AND FREQUENCY
     Route: 065
     Dates: start: 20200721
  5. BETNOVATE MED CHINOFORM [Suspect]
     Active Substance: BETAMETHASONE VALERATE\CLIOQUINOL
     Route: 065
     Dates: start: 20200519
  6. MONOPROST [Concomitant]
     Active Substance: LATANOPROST
     Dosage: UNKNOWN DOSE AND FREQUENCY
     Route: 065
     Dates: start: 20190123
  7. KALCIPOS?D [Concomitant]
     Active Substance: CALCIUM CARBONATE\CHOLECALCIFEROL
     Dosage: UNKNOWN DOSE AND FREQUENCY
     Route: 065
     Dates: start: 20200824
  8. PREDNISOLONE. [Concomitant]
     Active Substance: PREDNISOLONE
     Dosage: UNKNOWN DOSE AND FREQUENCY
     Route: 065
     Dates: start: 20191012
  9. ELIQUIS [Concomitant]
     Active Substance: APIXABAN
     Dosage: UNKNOWN DOSE AND FREQUENCY
     Route: 065
     Dates: start: 20170403
  10. SPIRONOLACTONE. [Concomitant]
     Active Substance: SPIRONOLACTONE
     Dosage: UNKNOWN DOSE AND FREQUENCY
     Route: 065
     Dates: start: 20191008
  11. DERMOVATE [Concomitant]
     Active Substance: CLOBETASOL
     Dosage: UNKNOWN DOSE AND FREQUENCY
     Route: 065
     Dates: start: 20200505
  12. ZOPICLONE [Concomitant]
     Active Substance: ZOPICLONE
     Route: 065
     Dates: start: 20200914
  13. ELOCON [Concomitant]
     Active Substance: MOMETASONE FUROATE
     Dosage: UNKNOWN DOSE AND FREQUENCY
     Route: 065
     Dates: start: 20201006
  14. METOLAZONE. [Concomitant]
     Active Substance: METOLAZONE
     Dosage: UNKNOWN DOSE AND FREQUENCY
     Route: 065
     Dates: start: 20180330
  15. BETNOVAT [Concomitant]
     Active Substance: BETAMETHASONE
     Dosage: UNKNOWN DOSE AND FREQUENCY
     Route: 065
     Dates: start: 20200505
  16. ZINC OXIDE. [Concomitant]
     Active Substance: ZINC OXIDE
     Dosage: UNKNOWN DOSE AND FREQUENCY
     Route: 065
     Dates: start: 20200505
  17. CANODERM [Concomitant]
     Active Substance: UREA
     Dosage: UNKNOWN DOSE AND FREQUENCY
     Route: 065
     Dates: start: 20200415
  18. ALVEDON [Concomitant]
     Active Substance: ACETAMINOPHEN
     Dosage: UNKNOWN DOSE AND FREQUENCY
     Route: 065
  19. LORATADINE. [Concomitant]
     Active Substance: LORATADINE
     Dosage: UNKNOWN DOSE AND FREQUENC
     Route: 065
     Dates: start: 20200607
  20. DOXAZOSIN [Concomitant]
     Active Substance: DOXAZOSIN MESYLATE
     Dosage: UNKNOWN DOSE AND FREQUENCY
     Route: 065
     Dates: start: 20180919
  21. MICROLAX /DK [Concomitant]
     Dosage: UNKNOWN DOSE AND FREQUENCY
     Route: 065
     Dates: start: 20200914
  22. BURINEX [Concomitant]
     Active Substance: BUMETANIDE
     Dosage: UNKNOWN DOSE AND FREQUENCY
     Route: 065
     Dates: start: 20190418

REACTIONS (1)
  - Diarrhoea [Not Recovered/Not Resolved]

NARRATIVE: CASE EVENT DATE: 20201030
